FAERS Safety Report 5628639-6 (Version None)
Quarter: 2008Q1

REPORT INFORMATION
  Report Type: 
  Country: None (occurrence: None)
  Receive Date: 20080215
  Receipt Date: 20080205
  Transmission Date: 20080703
  Serious: Yes (Other)
  Sender: FDA-Public Use
  Company Number: CN-PFIZER INC-2008011878

PATIENT
  Age: 75 Year
  Sex: Female

DRUGS (3)
  1. ZYVOX [Suspect]
     Indication: PURULENT PERICARDITIS
     Route: 042
     Dates: start: 20080201, end: 20080204
  2. GLUCOTROL [Concomitant]
     Route: 048
  3. INSULIN [Concomitant]
     Dates: start: 20080202, end: 20080203

REACTIONS (1)
  - BLOOD GLUCOSE DECREASED [None]
